FAERS Safety Report 6071642-5 (Version None)
Quarter: 2009Q1

REPORT INFORMATION
  Report Type: 
  Country: None (occurrence: None)
  Receive Date: 20090209
  Receipt Date: 20090209
  Transmission Date: 20090719
  Serious: Yes (Other)
  Sender: FDA-Public Use
  Company Number: None

PATIENT
  Age: 77 Year
  Sex: Female
  Weight: 51.7101 kg

DRUGS (1)
  1. TEARS NATURALE, ALCON [Suspect]
     Indication: DRY EYE
     Dosage: 1-2 DROP IN EYE WHEN NEEDED NOVEMBER LAST WK DEC - JANUARY

REACTIONS (3)
  - ABNORMAL SENSATION IN EYE [None]
  - FOREIGN BODY SENSATION IN EYES [None]
  - PRODUCT QUALITY ISSUE [None]
